FAERS Safety Report 25663986 (Version 1)
Quarter: 2025Q3

REPORT INFORMATION
  Report Type: Spontaneous
  Country: EU (occurrence: EU)
  Receive Date: 20250811
  Receipt Date: 20250811
  Transmission Date: 20251021
  Serious: Yes (Other)
  Sender: CELLTRION
  Company Number: EU-SA-2025SA151268

PATIENT

DRUGS (4)
  1. RITUXIMAB [Suspect]
     Active Substance: RITUXIMAB
     Indication: Rhupus syndrome
     Dates: start: 2021
  2. RITUXIMAB [Suspect]
     Active Substance: RITUXIMAB
     Indication: Polyarthritis
  3. PREDNISONE [Suspect]
     Active Substance: PREDNISONE
     Indication: Rhupus syndrome
     Dates: start: 2021
  4. PREDNISONE [Suspect]
     Active Substance: PREDNISONE
     Indication: Polyarthritis

REACTIONS (4)
  - Hypereosinophilic syndrome [Recovered/Resolved]
  - Endocarditis fibroplastica [Recovering/Resolving]
  - Treatment noncompliance [Unknown]
  - Intentional product use issue [Unknown]
